FAERS Safety Report 9060641 (Version 2)
Quarter: 2013Q1

REPORT INFORMATION
  Report Type: Spontaneous
  Country: US (occurrence: US)
  Receive Date: 20130212
  Receipt Date: 20130308
  Transmission Date: 20140127
  Serious: Yes (Hospitalization)
  Sender: FDA-Public Use
  Company Number: US-B.I. PHARMACEUTICALS,INC./RIDGEFIELD-2013-BI-03524BP

PATIENT
  Age: 78 None
  Sex: Male
  Weight: 99.79 kg

DRUGS (8)
  1. PRADAXA [Suspect]
     Indication: ANTICOAGULANT THERAPY
     Dosage: 300 MG
     Dates: start: 20101230, end: 20111217
  2. PRADAXA [Suspect]
     Indication: ATRIAL FIBRILLATION
  3. GLYBURIDE [Concomitant]
     Dosage: 20 MG
     Dates: start: 1993
  4. METFORMIN [Concomitant]
     Dosage: 3400 MG
     Dates: start: 1993
  5. LIPITOR [Concomitant]
     Dosage: 40 MG
     Dates: start: 1993
  6. TOPROL XL [Concomitant]
     Dosage: 300 MG
     Dates: start: 1993
  7. POTASSIUM CHLORIDE [Concomitant]
     Dosage: 20 MG
     Dates: start: 2003
  8. TORSEMIDE [Concomitant]
     Dosage: 20 MG

REACTIONS (2)
  - Gastrointestinal haemorrhage [Unknown]
  - Haemorrhagic anaemia [Unknown]
